FAERS Safety Report 25761113 (Version 1)
Quarter: 2025Q3

REPORT INFORMATION
  Report Type: Spontaneous
  Country: US (occurrence: None)
  Receive Date: 20250903
  Receipt Date: 20250903
  Transmission Date: 20251020
  Serious: No
  Sender: FDA-CTU
  Company Number: None

PATIENT
  Sex: Female

DRUGS (1)
  1. KESIMPTA [Suspect]
     Active Substance: OFATUMUMAB
     Indication: Multiple sclerosis
     Route: 048
     Dates: start: 20250521

REACTIONS (9)
  - Presyncope [None]
  - Chest discomfort [None]
  - Muscle tightness [None]
  - Nausea [None]
  - Vomiting [None]
  - Chest pain [None]
  - Pain [None]
  - Muscle spasms [None]
  - Therapy cessation [None]
